FAERS Safety Report 19101560 (Version 1)
Quarter: 2021Q2

REPORT INFORMATION
  Report Type: Spontaneous
  Country: US (occurrence: US)
  Receive Date: 20210407
  Receipt Date: 20210407
  Transmission Date: 20210717
  Serious: Yes (Hospitalization)
  Sender: FDA-Public Use
  Company Number: None

PATIENT
  Age: 61 Year
  Sex: Male
  Weight: 99 kg

DRUGS (1)
  1. EMPAGLIFLOZIN (EMPAGLIFLOZIN 25MG TAB) [Suspect]
     Active Substance: EMPAGLIFLOZIN
     Route: 048
     Dates: start: 20191112, end: 20210113

REACTIONS (9)
  - Anxiety [None]
  - Euglycaemic diabetic ketoacidosis [None]
  - Hypophagia [None]
  - Vomiting [None]
  - Pyrexia [None]
  - Nausea [None]
  - Myalgia [None]
  - Diarrhoea [None]
  - COVID-19 [None]

NARRATIVE: CASE EVENT DATE: 20210115
